FAERS Safety Report 25382292 (Version 1)
Quarter: 2025Q2

REPORT INFORMATION
  Report Type: Report from Study
  Country: US (occurrence: US)
  Receive Date: 20250601
  Receipt Date: 20250601
  Transmission Date: 20250717
  Serious: No
  Sender: SANDOZ
  Company Number: US-SANDOZ-SDZ2025US037568

PATIENT
  Sex: Female

DRUGS (2)
  1. OMNITROPE [Suspect]
     Active Substance: SOMATROPIN
     Indication: Turner^s syndrome
     Dosage: 0.8 MG, QD
     Route: 058
  2. OMNITROPE [Suspect]
     Active Substance: SOMATROPIN
     Indication: Turner^s syndrome
     Dosage: 0.8 MG, QD
     Route: 058

REACTIONS (3)
  - Injection site pain [Unknown]
  - Injection site erythema [Unknown]
  - Therapy interrupted [Unknown]
